FAERS Safety Report 15345056 (Version 1)
Quarter: 2018Q3

REPORT INFORMATION
  Report Type: Spontaneous
  Country: PK (occurrence: PK)
  Receive Date: 20180903
  Receipt Date: 20180903
  Transmission Date: 20181010
  Serious: Yes (Other)
  Sender: FDA-Public Use
  Company Number: PHHY2018PK082970

PATIENT
  Age: 11 Month
  Weight: 27 kg

DRUGS (1)
  1. TRIAMCINOLONE [Suspect]
     Active Substance: TRIAMCINOLONE
     Indication: RASH
     Route: 061

REACTIONS (15)
  - Cushing^s syndrome [Recovered/Resolved]
  - Hypocalcaemia [Recovering/Resolving]
  - Ascites [Recovering/Resolving]
  - Liver function test abnormal [Recovering/Resolving]
  - Hepatomegaly [Recovering/Resolving]
  - Cushingoid [Recovering/Resolving]
  - Weight increased [Recovering/Resolving]
  - Lethargy [Recovering/Resolving]
  - White blood cell count abnormal [Recovering/Resolving]
  - Neutrophilia [Recovering/Resolving]
  - Hypernatraemia [Recovering/Resolving]
  - Pyrexia [Recovering/Resolving]
  - Blood glucose abnormal [Recovering/Resolving]
  - Decreased appetite [Recovering/Resolving]
  - Metabolic alkalosis [Recovering/Resolving]
